FAERS Safety Report 8756414 (Version 2)
Quarter: 2012Q4

REPORT INFORMATION
  Report Type: 
  Country: JP (occurrence: JP)
  Receive Date: 20120828
  Receipt Date: 20120911
  Transmission Date: 20130627
  Serious: No
  Sender: FDA-Public Use
  Company Number: JP-ABBOTT-12P-087-0970727-00

PATIENT
  Age: 63 Year
  Sex: Male
  Weight: 60.4 kg

DRUGS (5)
  1. CLARITH [Suspect]
     Indication: PHARYNGEAL ERYTHEMA
     Route: 048
     Dates: start: 20120713, end: 20120714
  2. MUCODYNE [Suspect]
     Indication: PHARYNGEAL ERYTHEMA
     Route: 048
     Dates: start: 20120713, end: 20120714
  3. LIPIDIL [Suspect]
     Indication: HYPERTRIGLYCERIDAEMIA
     Dates: start: 20120619, end: 20120713
  4. ZYLORIC [Concomitant]
     Indication: HYPERURICAEMIA
  5. NESINA [Concomitant]
     Indication: DIABETES MELLITUS
     Dates: start: 20111221, end: 20120713

REACTIONS (3)
  - Anaphylactoid reaction [Recovered/Resolved]
  - Rash papular [Recovered/Resolved]
  - Dysphonia [Recovered/Resolved]
